FAERS Safety Report 23677629 (Version 2)
Quarter: 2024Q2

REPORT INFORMATION
  Report Type: Spontaneous
  Country: JP (occurrence: JP)
  Receive Date: 20240327
  Receipt Date: 20240611
  Transmission Date: 20240715
  Serious: Yes (Other)
  Sender: FDA-Public Use
  Company Number: JP-CHUGAI-2024008607

PATIENT
  Age: 78 Year
  Sex: Male

DRUGS (2)
  1. VABYSMO [Suspect]
     Active Substance: FARICIMAB\FARICIMAB-SVOA
     Indication: Neovascular age-related macular degeneration
     Dosage: 0.05 MILLILITER, ONCE/4WEEKS, LEFT EYE
     Route: 065
     Dates: start: 20240122
  2. VABYSMO [Suspect]
     Active Substance: FARICIMAB\FARICIMAB-SVOA
     Dosage: 0.05 MILLILITER, ONCE/4WEEKS,RIGHT EYE
     Route: 065
     Dates: start: 20240125

REACTIONS (6)
  - Retinal vascular occlusion [Recovered/Resolved]
  - Retinal pigment epithelial tear [Not Recovered/Not Resolved]
  - Eye inflammation [Recovering/Resolving]
  - Retinal vasculitis [Recovered/Resolved]
  - Iritis [Unknown]
  - Vitritis [Unknown]

NARRATIVE: CASE EVENT DATE: 20240220
